FAERS Safety Report 13609521 (Version 1)
Quarter: 2017Q2

REPORT INFORMATION
  Report Type: Spontaneous
  Country: CH (occurrence: CH)
  Receive Date: 20170602
  Receipt Date: 20170602
  Transmission Date: 20170830
  Serious: Yes (Other)
  Sender: FDA-Public Use
  Company Number: CH-PFIZER INC-2017230588

PATIENT
  Age: 68 Year
  Sex: Female

DRUGS (31)
  1. NEXIUM CONTROL [Suspect]
     Active Substance: ESOMEPRAZOLE MAGNESIUM
     Dosage: 40 MG, 1X/DAY
     Route: 048
     Dates: start: 20170204
  2. ELIQUIS [Concomitant]
     Active Substance: APIXABAN
     Dosage: UNK
     Dates: end: 20170203
  3. ZOFRAN [Concomitant]
     Active Substance: ONDANSETRON HYDROCHLORIDE
     Dosage: UNK
     Dates: start: 20170208, end: 20170221
  4. CLEXANE [Concomitant]
     Active Substance: ENOXAPARIN SODIUM
     Dosage: UNK
     Dates: start: 20170210, end: 20170220
  5. MOVICOL [Concomitant]
     Active Substance: POLYETHYLENE GLYCOL 3350\POTASSIUM CHLORIDE\SODIUM BICARBONATE\SODIUM CHLORIDE
     Dosage: UNK
     Dates: start: 20170427
  6. CONCOR [Concomitant]
     Active Substance: BISOPROLOL FUMARATE
     Dosage: UNK
     Dates: start: 20170203, end: 20170322
  7. AXIDRONAT [Concomitant]
     Dosage: UNK
     Dates: start: 20170205, end: 20170205
  8. TRAMAL [Concomitant]
     Active Substance: TRAMADOL
     Dosage: UNK
     Dates: start: 20170311, end: 20170315
  9. SERTRALINE HCL [Suspect]
     Active Substance: SERTRALINE HYDROCHLORIDE
     Dosage: 25 MG, 1X/DAY
     Route: 048
     Dates: start: 20170425
  10. XANAX [Suspect]
     Active Substance: ALPRAZOLAM
     Dosage: 0.5 MG, 1X/DAY
     Route: 048
     Dates: start: 20170421
  11. DEXAMETHASONE. [Suspect]
     Active Substance: DEXAMETHASONE
     Dosage: 40 MG, 1X/DAY
     Route: 048
     Dates: start: 20170204, end: 20170206
  12. MOTILIUM [Concomitant]
     Active Substance: DOMPERIDONE
     Dosage: UNK
     Dates: start: 20170221, end: 20170302
  13. DAFALGAN [Suspect]
     Active Substance: ACETAMINOPHEN
     Dosage: 1 G, 3X/DAY
     Route: 048
     Dates: start: 20170209
  14. TEMESTA /00273201/ [Concomitant]
     Active Substance: LORAZEPAM
     Dosage: DOSES : 06FEB AND 18FEB
     Dates: start: 20170206
  15. PREDNISONE. [Concomitant]
     Active Substance: PREDNISONE
     Dosage: UNK
     Dates: start: 20170210, end: 20170211
  16. IMPORTAL [Concomitant]
     Active Substance: LACTITOL
     Dosage: UNK
     Dates: start: 20170421
  17. ALKERAN [Suspect]
     Active Substance: MELPHALAN
     Dosage: 16 MG, 1 X 6 WEEKS
     Route: 040
     Dates: start: 20170210, end: 20170212
  18. DEXAMETHASONE. [Suspect]
     Active Substance: DEXAMETHASONE
     Dosage: 40 MG, WEEKLY
     Route: 048
     Dates: start: 20170503, end: 20170515
  19. BACTRIM [Suspect]
     Active Substance: SULFAMETHOXAZOLE\TRIMETHOPRIM
     Dosage: 160 MG, 3 X /WEEK
     Route: 048
     Dates: start: 20170510, end: 20170514
  20. CO-AMOXI [Suspect]
     Active Substance: AMOXICILLIN\CLAVULANATE POTASSIUM
     Dosage: 625 MG, 3X/DAY
     Route: 048
     Dates: start: 20170426, end: 20170502
  21. TOREM /01036501/ [Concomitant]
     Active Substance: TORSEMIDE
     Dates: start: 20170224, end: 20170308
  22. LISINOPRIL. [Suspect]
     Active Substance: LISINOPRIL
     Dosage: 2.5 MG, 1X/DAY
     Route: 048
     Dates: start: 20170328, end: 20170511
  23. REVLIMID [Suspect]
     Active Substance: LENALIDOMIDE
     Dosage: 25 MG, 1X/DAY (FOR 28 DAY CYCLES)
     Route: 048
     Dates: start: 20170502
  24. SURMONTIL [Concomitant]
     Active Substance: TRIMIPRAMINE MALEATE
     Dosage: UNK
     Dates: start: 20170202
  25. ZOFRAN [Concomitant]
     Active Substance: ONDANSETRON HYDROCHLORIDE
     Dosage: UNK
     Dates: start: 20170223
  26. CEFEPIME [Concomitant]
     Active Substance: CEFEPIME HYDROCHLORIDE
     Dosage: UNK
     Dates: start: 20170324, end: 20170331
  27. VALTREX [Concomitant]
     Active Substance: VALACYCLOVIR HYDROCHLORIDE
     Dosage: UNK
     Dates: start: 20170210
  28. VELCADE [Suspect]
     Active Substance: BORTEZOMIB
     Dosage: 2.27 MG, ON 12FEB2017, 19FEB, 02MAR, 05MAR, 09MAR, 12MAR
     Route: 040
     Dates: start: 20170212, end: 20170312
  29. LIQUEMINE [Suspect]
     Active Substance: HEPARIN SODIUM
     Dosage: 22000 IU, 1X/24H
     Route: 041
     Dates: start: 20170304, end: 20170307
  30. TRAMAL [Concomitant]
     Active Substance: TRAMADOL
     Dosage: UNK
     Dates: start: 20170215, end: 20170219
  31. TARGIN [Concomitant]
     Active Substance: NALOXONE HYDROCHLORIDE\OXYCODONE HYDROCHLORIDE
     Dosage: UNK
     Dates: start: 20170418

REACTIONS (6)
  - Thrombocytopenia [Recovered/Resolved]
  - Hepatitis [Recovering/Resolving]
  - Leukopenia [Recovered/Resolved]
  - Cholestatic liver injury [Recovered/Resolved]
  - Pyrexia [Recovered/Resolved]
  - Neoplasm progression [Unknown]

NARRATIVE: CASE EVENT DATE: 2017
